FAERS Safety Report 24186238 (Version 1)
Quarter: 2024Q3

REPORT INFORMATION
  Report Type: Spontaneous
  Country: CN (occurrence: CN)
  Receive Date: 20240808
  Receipt Date: 20240808
  Transmission Date: 20241016
  Serious: Yes (Hospitalization)
  Sender: BEIGENE
  Company Number: CN-BEIGENE-BGN-2024-011970

PATIENT

DRUGS (9)
  1. TISLELIZUMAB [Suspect]
     Active Substance: TISLELIZUMAB
     Indication: Chondrosarcoma
     Dosage: CYCLE 1
     Route: 041
     Dates: start: 20240429, end: 20240501
  2. TISLELIZUMAB [Suspect]
     Active Substance: TISLELIZUMAB
     Dosage: CYCLE 2
     Route: 041
     Dates: start: 20240607, end: 20240609
  3. TISLELIZUMAB [Suspect]
     Active Substance: TISLELIZUMAB
     Dosage: 200 MILLIGRAM
     Route: 041
     Dates: start: 20240708, end: 20240708
  4. IFOSFAMIDE [Concomitant]
     Active Substance: IFOSFAMIDE
     Indication: Chondrosarcoma
     Dosage: CYCLE 1
     Route: 041
     Dates: start: 20240429, end: 20240501
  5. IFOSFAMIDE [Concomitant]
     Active Substance: IFOSFAMIDE
     Dosage: CYCLE 2
     Route: 041
     Dates: start: 20240607, end: 20240609
  6. IFOSFAMIDE [Concomitant]
     Active Substance: IFOSFAMIDE
     Dosage: 3.5 GRAM, D1-D3
     Route: 041
     Dates: start: 20240708
  7. DOXORUBICIN [Concomitant]
     Active Substance: DOXORUBICIN
     Indication: Chondrosarcoma
     Dosage: CYCLE 1
     Route: 041
     Dates: start: 20240429, end: 20240501
  8. DOXORUBICIN [Concomitant]
     Active Substance: DOXORUBICIN
     Dosage: CYCLE 2
     Route: 041
     Dates: start: 20240607, end: 20240609
  9. DOXORUBICIN [Concomitant]
     Active Substance: DOXORUBICIN
     Dosage: 35 MILLIGRAM, D1-D3
     Route: 041
     Dates: start: 20240708

REACTIONS (1)
  - Erythema multiforme [Recovering/Resolving]

NARRATIVE: CASE EVENT DATE: 20240708
